FAERS Safety Report 5750611-6 (Version None)
Quarter: 2008Q2

REPORT INFORMATION
  Report Type: 
  Country: None (occurrence: None)
  Receive Date: 20080523
  Receipt Date: 20080523
  Transmission Date: 20081010
  Serious: No
  Sender: FDA-Public Use
  Company Number: None

PATIENT
  Age: 79 Year
  Weight: 95.2554 kg

DRUGS (1)
  1. DIGITEK  .125 [Suspect]
     Dosage: 1 PILL/AM  1 A DAY
     Dates: start: 20080110, end: 20080510

REACTIONS (2)
  - DRUG DISPENSING ERROR [None]
  - MEDICATION ERROR [None]
